FAERS Safety Report 22592542 (Version 1)
Quarter: 2023Q2

REPORT INFORMATION
  Report Type: Spontaneous
  Country: FR (occurrence: None)
  Receive Date: 20230613
  Receipt Date: 20230613
  Transmission Date: 20230721
  Serious: Yes (Other)
  Sender: FDA-Public Use
  Company Number: None

PATIENT
  Age: 75 Year
  Sex: Male
  Weight: 67 kg

DRUGS (2)
  1. AVASTIN [Suspect]
     Active Substance: BEVACIZUMAB
     Indication: Mixed hepatocellular cholangiocarcinoma
     Route: 065
     Dates: start: 20220907, end: 20230113
  2. TECENTRIQ [Suspect]
     Active Substance: ATEZOLIZUMAB
     Indication: Mixed hepatocellular cholangiocarcinoma
     Route: 065
     Dates: start: 20220907, end: 20230113

REACTIONS (2)
  - Myeloproliferative neoplasm [Not Recovered/Not Resolved]
  - Myelodysplastic syndrome unclassifiable [Not Recovered/Not Resolved]

NARRATIVE: CASE EVENT DATE: 20230130
